FAERS Safety Report 17432918 (Version 3)
Quarter: 2020Q1

REPORT INFORMATION
  Report Type: Spontaneous
  Country: DE (occurrence: DE)
  Receive Date: 20200219
  Receipt Date: 20200323
  Transmission Date: 20200409
  Serious: Yes (Hospitalization, Disabling, Other)
  Sender: FDA-Public Use
  Company Number: DE-ROCHE-2542135

PATIENT
  Age: 85 Year
  Sex: Female
  Weight: 70 kg

DRUGS (3)
  1. AVASTIN [Suspect]
     Active Substance: BEVACIZUMAB
     Dosage: 3RD ADMINISTRATION
     Route: 050
     Dates: start: 20190301, end: 20190301
  2. AVASTIN [Suspect]
     Active Substance: BEVACIZUMAB
     Dosage: 2ND ADMINISTRATION
     Route: 050
     Dates: start: 20190125, end: 20190125
  3. AVASTIN [Suspect]
     Active Substance: BEVACIZUMAB
     Indication: NEOVASCULAR AGE-RELATED MACULAR DEGENERATION
     Dosage: 1ST ADMINISTRATION
     Route: 050
     Dates: start: 20181213, end: 20181213

REACTIONS (8)
  - Lenticular opacities [Recovered/Resolved]
  - Intentional product use issue [Unknown]
  - Off label use [Unknown]
  - Blindness unilateral [Not Recovered/Not Resolved]
  - Endophthalmitis [Recovering/Resolving]
  - Vitritis infective [Recovered/Resolved with Sequelae]
  - Gastrointestinal infection [Unknown]
  - Diarrhoea [Recovering/Resolving]

NARRATIVE: CASE EVENT DATE: 201903
